FAERS Safety Report 19228046 (Version 1)
Quarter: 2021Q2

REPORT INFORMATION
  Report Type: Spontaneous
  Country: US (occurrence: US)
  Receive Date: 20210506
  Receipt Date: 20210506
  Transmission Date: 20210717
  Serious: Yes (Death)
  Sender: FDA-Public Use
  Company Number: US-FRESENIUS KABI-FK202104585

PATIENT

DRUGS (3)
  1. DOBUTAMINE [Concomitant]
     Active Substance: DOBUTAMINE HYDROCHLORIDE
     Indication: CARDIAC FAILURE ACUTE
     Route: 065
  2. ATROPINE (MANUFACTURER UNKNOWN) [Suspect]
     Active Substance: ATROPINE
     Indication: ATRIOVENTRICULAR BLOCK COMPLETE
  3. ATROPINE (MANUFACTURER UNKNOWN) [Suspect]
     Active Substance: ATROPINE
     Indication: SINUS BRADYCARDIA
     Route: 042

REACTIONS (1)
  - Treatment failure [Fatal]
